FAERS Safety Report 22002284 (Version 1)
Quarter: 2023Q1

REPORT INFORMATION
  Report Type: Spontaneous
  Country: US (occurrence: US)
  Receive Date: 20230217
  Receipt Date: 20230217
  Transmission Date: 20230417
  Serious: No
  Sender: FDA-Public Use
  Company Number: US-BIOGEN-2023BI01188092

PATIENT
  Sex: Male

DRUGS (7)
  1. TECFIDERA [Suspect]
     Active Substance: DIMETHYL FUMARATE
     Indication: Multiple sclerosis
     Route: 050
  2. METFORMIN HYDROCHLORIDE [Concomitant]
     Active Substance: METFORMIN HYDROCHLORIDE
     Route: 050
  3. LOVASTATIN [Concomitant]
     Active Substance: LOVASTATIN
     Route: 050
  4. ROSUVASTATIN CALCIUM [Concomitant]
     Active Substance: ROSUVASTATIN CALCIUM
     Route: 050
  5. ASPIRIN [Concomitant]
     Active Substance: ASPIRIN
     Route: 050
  6. VITAMIN C [Concomitant]
     Active Substance: ASCORBIC ACID
     Route: 050
  7. GLIPIZIDE [Concomitant]
     Active Substance: GLIPIZIDE
     Route: 050

REACTIONS (1)
  - Multiple sclerosis [Unknown]
